FAERS Safety Report 18202401 (Version 1)
Quarter: 2020Q3

REPORT INFORMATION
  Report Type: Spontaneous
  Country: US (occurrence: US)
  Receive Date: 20200827
  Receipt Date: 20200827
  Transmission Date: 20201103
  Serious: No
  Sender: FDA-Public Use
  Company Number: None

PATIENT

DRUGS (2)
  1. HEPARIN SOD. INJECTION 1,000 UNITS/ML HEPARIN SODIUM [Suspect]
     Active Substance: HEPARIN SODIUM
     Dosage: ?          OTHER STRENGTH:1000 UNITS/500ML;?
  2. SODIUM CHLORIDE 0.9% SOLUTION SODIUM CHLORIDE [Suspect]
     Active Substance: SODIUM CHLORIDE

REACTIONS (2)
  - Intercepted product dispensing error [None]
  - Product packaging confusion [None]
